FAERS Safety Report 6140098-6 (Version None)
Quarter: 2009Q1

REPORT INFORMATION
  Report Type: 
  Country: None (occurrence: None)
  Receive Date: 20090324
  Receipt Date: 20090323
  Transmission Date: 20090719
  Serious: No
  Sender: FDA-Public Use
  Company Number: 223673

PATIENT
  Sex: Female

DRUGS (1)
  1. METHOTREXATE [Suspect]
     Dosage: INJECTION
     Route: 042
     Dates: start: 20090321

REACTIONS (3)
  - ERYTHEMA [None]
  - PHOTOSENSITIVITY REACTION [None]
  - RASH [None]
